FAERS Safety Report 23752502 (Version 1)
Quarter: 2024Q2

REPORT INFORMATION
  Report Type: Spontaneous
  Country: US (occurrence: None)
  Receive Date: 20240417
  Receipt Date: 20240417
  Transmission Date: 20240716
  Serious: Yes (Death)
  Sender: FDA-Public Use
  Company Number: None

PATIENT
  Age: 65 Year
  Sex: Female
  Weight: 85.91 kg

DRUGS (25)
  1. DUPIXENT [Suspect]
     Active Substance: DUPILUMAB
     Indication: Asthma
     Dosage: OTHER QUANTITY : 300MG/2ML;?OTHER FREQUENCY : EVERY 2 WEEKS;?
     Route: 058
     Dates: start: 20230308, end: 20240401
  2. ALBUTEROL [Concomitant]
     Active Substance: ALBUTEROL
  3. ASPIRIN [Concomitant]
     Active Substance: ASPIRIN
  4. BUDESONIDE [Concomitant]
     Active Substance: BUDESONIDE
  5. Calcet petite [Concomitant]
  6. CETIRIZINE [Concomitant]
     Active Substance: CETIRIZINE HYDROCHLORIDE
  7. DILTIAZEM [Concomitant]
     Active Substance: DILTIAZEM
  8. ACETAMINOPHEN\HYDROCODONE [Concomitant]
     Active Substance: ACETAMINOPHEN\HYDROCODONE
  9. KLOR-CON M10 ER [Concomitant]
  10. LANTUS SOLOSTAR [Concomitant]
     Active Substance: INSULIN GLARGINE
  11. LIDOCAINE [Concomitant]
     Active Substance: LIDOCAINE
  12. albuterol [Concomitant]
  13. ASPIRIN [Concomitant]
     Active Substance: ASPIRIN
  14. BUDESONIDE [Concomitant]
     Active Substance: BUDESONIDE
  15. calcet petite [Concomitant]
  16. CETIRIZINE [Concomitant]
     Active Substance: CETIRIZINE HYDROCHLORIDE
  17. DILTIAZEM [Concomitant]
     Active Substance: DILTIAZEM
  18. HYDROCODONE/ACETAMINOPHEN [Concomitant]
  19. clor-con [Concomitant]
  20. lantus solostar [Concomitant]
  21. LIDOCAINE [Concomitant]
     Active Substance: LIDOCAINE
  22. MONTELUKAST [Concomitant]
  23. NOVOLIN N [Concomitant]
     Active Substance: INSULIN HUMAN
  24. PREDNISONE [Concomitant]
     Active Substance: PREDNISONE
  25. VENTOLIN [Concomitant]
     Active Substance: ALBUTEROL SULFATE

REACTIONS (1)
  - Death [None]

NARRATIVE: CASE EVENT DATE: 20240401
